FAERS Safety Report 8007875-8 (Version None)
Quarter: 2011Q4

REPORT INFORMATION
  Report Type: 
  Country: None (occurrence: None)
  Receive Date: 20111222
  Receipt Date: 20111222
  Transmission Date: 20120403
  Serious: Yes (Hospitalization)
  Sender: FDA-Public Use
  Company Number: None

PATIENT
  Sex: Female
  Weight: 81.6475 kg

DRUGS (2)
  1. LUPRON DEPOT [Suspect]
     Indication: DYSMENORRHOEA
     Dosage: 11.25MG  ONCE
     Dates: start: 20110809
  2. LUPRON DEPOT [Suspect]
     Indication: MENSTRUAL DISORDER
     Dosage: 11.25MG  ONCE
     Dates: start: 20110809

REACTIONS (11)
  - NAUSEA [None]
  - INSOMNIA [None]
  - DEPRESSION [None]
  - CHEST PAIN [None]
  - FATIGUE [None]
  - ABDOMINAL PAIN UPPER [None]
  - HEADACHE [None]
  - MALAISE [None]
  - BLOOD PRESSURE INCREASED [None]
  - DRY MOUTH [None]
  - HOT FLUSH [None]
